FAERS Safety Report 5065339-8 (Version None)
Quarter: 2006Q3

REPORT INFORMATION
  Report Type: 
  Country: None (occurrence: None)
  Receive Date: 20060731
  Receipt Date: 20060324
  Transmission Date: 20061208
  Serious: Yes (Disabling, Congenital Anomaly)
  Sender: FDA-Public Use
  Company Number: JP-SP-2006-00687

PATIENT
  Age: 76 Year
  Sex: Female

DRUGS (1)
  1. IMMUCYST [Suspect]
     Indication: CARCINOMA IN SITU OF BLADDER
     Route: 043
     Dates: start: 20051108, end: 20051227

REACTIONS (3)
  - BLOOD CREATININE INCREASED [None]
  - FATIGUE [None]
  - RENAL FAILURE [None]
